FAERS Safety Report 18677540 (Version 1)
Quarter: 2020Q4

REPORT INFORMATION
  Report Type: Report from Study
  Country: US (occurrence: US)
  Receive Date: 20201229
  Receipt Date: 20201229
  Transmission Date: 20210114
  Serious: Yes (Hospitalization)
  Sender: FDA-Public Use
  Company Number: US-REGENERON PHARMACEUTICALS, INC.-2020-95610

PATIENT

DRUGS (1)
  1. CASIRIVIMAB AND IMDEVIMAB [Suspect]
     Active Substance: CASIRIVIMAB\IMDEVIMAB
     Indication: COVID-19
     Dosage: CASIRIVIMAB AND IMDEVIMAB COMBINATION THERAPY 2.4 G, IV, SINGLE DOSE
     Route: 042
     Dates: start: 20201218, end: 20201218

REACTIONS (3)
  - Thrombocytopenia [Unknown]
  - Troponin increased [Unknown]
  - Hypoxia [Unknown]

NARRATIVE: CASE EVENT DATE: 20201218
